FAERS Safety Report 21886823 (Version 1)
Quarter: 2023Q1

REPORT INFORMATION
  Report Type: Spontaneous
  Country: US (occurrence: US)
  Receive Date: 20230119
  Receipt Date: 20230119
  Transmission Date: 20230417
  Serious: No
  Sender: FDA-Public Use
  Company Number: US-ELI_LILLY_AND_COMPANY-US202301006933

PATIENT
  Age: 67 Year
  Sex: Male

DRUGS (1)
  1. HUMULIN R [Suspect]
     Active Substance: INSULIN HUMAN
     Indication: Type 2 diabetes mellitus
     Dosage: 65 U, DAILY
     Route: 058
     Dates: start: 201308

REACTIONS (2)
  - Wrong technique in product usage process [Unknown]
  - Weight increased [Unknown]

NARRATIVE: CASE EVENT DATE: 20130801
